FAERS Safety Report 6016481-6 (Version None)
Quarter: 2008Q4

REPORT INFORMATION
  Report Type: 
  Country: None (occurrence: None)
  Receive Date: 20081222
  Receipt Date: 20081212
  Transmission Date: 20090506
  Serious: Yes (Death)
  Sender: FDA-Public Use
  Company Number: JP-PFIZER INC-2008076501

PATIENT

DRUGS (7)
  1. CELECOX [Suspect]
     Indication: RHEUMATOID ARTHRITIS
     Dosage: 100 MG, 1X/DAY
     Route: 048
     Dates: start: 20080401, end: 20080609
  2. PREDNISOLONE [Concomitant]
     Indication: RHEUMATOID ARTHRITIS
     Dosage: 1(MG)/DAY
     Route: 048
  3. NITOROL R [Concomitant]
     Dosage: 20(MG)/DAY
     Route: 048
  4. FERROMIA [Concomitant]
     Dosage: 50(MG)/DAY
     Route: 048
  5. MENATETRENONE [Concomitant]
     Dosage: 15(MG)/DAY
     Route: 048
  6. AMLODIN [Concomitant]
     Dosage: 2.5(MG)/DAY
     Route: 048
  7. TAKEPRON [Concomitant]
     Indication: PROPHYLAXIS
     Dosage: 15(MG)/DAY
     Route: 048

REACTIONS (1)
  - LEUKAEMIA [None]
